FAERS Safety Report 6473305-0 (Version None)
Quarter: 2009Q4

REPORT INFORMATION
  Report Type: 
  Country: None (occurrence: None)
  Receive Date: 20091204
  Receipt Date: 20080729
  Transmission Date: 20100525
  Serious: Yes (Life-Threatening, Hospitalization)
  Sender: FDA-Public Use
  Company Number: NL-ELI_LILLY_AND_COMPANY-NL200807002412

PATIENT
  Sex: Female
  Weight: 55 kg

DRUGS (6)
  1. ZYPREXA [Suspect]
     Indication: SCHIZOPHRENIA, PARANOID TYPE
     Dosage: 20 MG, DAILY (1/D)
     Route: 048
     Dates: start: 20080617, end: 20080709
  2. PREDNISOLONE [Concomitant]
     Indication: GASTROINTESTINAL DISORDER
     Dosage: 30 MG, DAILY (1/D)
     Route: 048
     Dates: start: 20080626
  3. LOSEC [Concomitant]
     Indication: GASTROINTESTINAL DISORDER
     Dosage: 20 MG, DAILY (1/D)
     Dates: start: 20080626
  4. LORAZEPAM [Concomitant]
     Dosage: 2.5 MG, DAILY (1/D)
     Route: 048
     Dates: start: 20080618
  5. FERROFUMARAT [Concomitant]
     Dosage: 200 MG, 3/D
     Route: 048
     Dates: start: 20080618
  6. MESALAZINE [Concomitant]
     Dosage: 1000 MG, 3/D
     Dates: start: 20080619

REACTIONS (3)
  - AMAUROSIS FUGAX [None]
  - DEEP VEIN THROMBOSIS [None]
  - EMBOLISM [None]
